FAERS Safety Report 9294747 (Version 2)
Quarter: 2013Q2

REPORT INFORMATION
  Report Type: Spontaneous
  Country: US (occurrence: None)
  Receive Date: 20130514
  Receipt Date: 20130524
  Transmission Date: 20140414
  Serious: Yes (Other)
  Sender: FDA-Public Use
  Company Number: JPI-P-031555

PATIENT
  Age: 38 Year
  Sex: Female

DRUGS (5)
  1. XYREM (500 MILLIGRAM/MILLILITERS, SOLUTION) (SODIUM OXYBATE) [Suspect]
     Indication: CATAPLEXY
     Dosage: 4.5 GM (2.25 GM, 2 IN 1 D), ORAL
     Route: 048
     Dates: start: 20130421
  2. AMPHETAMINE, DEXTROAMPHETAMINE MIXED SALTS [Concomitant]
  3. MULTIVITAMIN [Concomitant]
  4. SUPER B COMPLEX [Concomitant]
  5. BIOTIN [Concomitant]

REACTIONS (3)
  - Peripheral artery stenosis [None]
  - Tinnitus [None]
  - Blood pressure increased [None]
